FAERS Safety Report 24774049 (Version 1)
Quarter: 2024Q4

REPORT INFORMATION
  Report Type: Spontaneous
  Country: US (occurrence: US)
  Receive Date: 20241225
  Receipt Date: 20241225
  Transmission Date: 20250115
  Serious: No
  Sender: SANOFI AVENTIS
  Company Number: US-SA-2024SA380159

PATIENT
  Age: 29 Year
  Sex: Female

DRUGS (1)
  1. CEREZYME [Suspect]
     Active Substance: IMIGLUCERASE
     Indication: Gaucher^s disease
     Dosage: 7000 U, QOW
     Route: 042
     Dates: start: 202407

REACTIONS (2)
  - Weight increased [Unknown]
  - Headache [Unknown]

NARRATIVE: CASE EVENT DATE: 20240101
